FAERS Safety Report 6392506-3 (Version None)
Quarter: 2009Q4

REPORT INFORMATION
  Report Type: 
  Country: None (occurrence: None)
  Receive Date: 20091007
  Receipt Date: 20090929
  Transmission Date: 20100525
  Serious: Yes (Hospitalization)
  Sender: FDA-Public Use
  Company Number: CHNY2009JP03517

PATIENT
  Age: 34 Year
  Sex: Female

DRUGS (2)
  1. VOLTAREN [Suspect]
     Indication: MYALGIA
     Dosage: ALTERNATIVELY EVERY OTHER DAYS
     Route: 061
  2. FELBINAC [Suspect]
     Dosage: ALTERNATIVELY EVERY OTHER DAYS

REACTIONS (6)
  - APPLICATION SITE ERYTHEMA [None]
  - APPLICATION SITE OEDEMA [None]
  - DERMATITIS CONTACT [None]
  - ERYTHEMA MULTIFORME [None]
  - HYPERSENSITIVITY [None]
  - RASH PRURITIC [None]
